FAERS Safety Report 25004014 (Version 1)
Quarter: 2025Q1

REPORT INFORMATION
  Report Type: Spontaneous
  Country: US (occurrence: US)
  Receive Date: 20250224
  Receipt Date: 20250224
  Transmission Date: 20250409
  Serious: No
  Sender: LANTHEUS MEDICAL IMAGING
  Company Number: US-LANTHEUS-LMI-2024-00377

PATIENT
  Age: 46 Year
  Sex: Female

DRUGS (2)
  1. DEFINITY [Suspect]
     Active Substance: PERFLUTREN
     Indication: Stress echocardiogram
     Route: 042
     Dates: start: 20240328, end: 20240328
  2. DOBUTAMINE [Suspect]
     Active Substance: DOBUTAMINE HYDROCHLORIDE
     Indication: Stress echocardiogram
     Dates: start: 20240328, end: 20240328

REACTIONS (2)
  - Muscle spasms [Recovered/Resolved]
  - Back pain [Recovered/Resolved]

NARRATIVE: CASE EVENT DATE: 20240328
